FAERS Safety Report 6408981-1 (Version None)
Quarter: 2009Q4

REPORT INFORMATION
  Report Type: 
  Country: None (occurrence: None)
  Receive Date: 20091021
  Receipt Date: 20091007
  Transmission Date: 20100525
  Serious: Yes (Other)
  Sender: FDA-Public Use
  Company Number: US-GENENTECH-292370

PATIENT

DRUGS (3)
  1. BEVACIZUMAB [Suspect]
     Indication: COLORECTAL CANCER METASTATIC
     Route: 065
  2. FLUOROURACIL [Suspect]
     Indication: COLORECTAL CANCER METASTATIC
     Route: 065
  3. LEUCOVORIN CALCIUM [Suspect]
     Indication: COLORECTAL CANCER METASTATIC
     Route: 065

REACTIONS (5)
  - ABSCESS [None]
  - DEEP VEIN THROMBOSIS [None]
  - GROIN ABSCESS [None]
  - PULMONARY EMBOLISM [None]
  - VENTRICULAR ARRHYTHMIA [None]
